FAERS Safety Report 4816000-3 (Version None)
Quarter: 2005Q4

REPORT INFORMATION
  Report Type: 
  Country: None (occurrence: None)
  Receive Date: 20051026
  Receipt Date: 20051020
  Transmission Date: 20060501
  Serious: Yes (Other)
  Sender: FDA-Public Use
  Company Number: 2005099160

PATIENT
  Age: 74 Year
  Sex: Female
  Weight: 89.8122 kg

DRUGS (5)
  1. LIPITOR [Suspect]
     Indication: BLOOD CHOLESTEROL INCREASED
     Dosage: 10 MG (10 MG, 1 IN 1 D), ORAL
     Route: 048
     Dates: start: 20040501, end: 20050714
  2. METRONIDAZOLE [Suspect]
     Indication: HELICOBACTER INFECTION
     Dosage: ORAL
     Route: 048
     Dates: start: 20040101
  3. BIAXIN [Suspect]
     Indication: HELICOBACTER INFECTION
     Dates: start: 20040101
  4. ALPRAZOLAM [Concomitant]
  5. HYDROCHLOROTHIAZIDE [Concomitant]

REACTIONS (5)
  - ALOPECIA [None]
  - DYSGEUSIA [None]
  - HELICOBACTER INFECTION [None]
  - ORAL INTAKE REDUCED [None]
  - WEIGHT DECREASED [None]
